FAERS Safety Report 18967397 (Version 2)
Quarter: 2021Q2

REPORT INFORMATION
  Report Type: Report from Study
  Country: US (occurrence: US)
  Receive Date: 20210303
  Receipt Date: 20210414
  Transmission Date: 20210717
  Serious: Yes (Hospitalization)
  Sender: FDA-Public Use
  Company Number: US-SEATTLE GENETICS-2020SGN05121

PATIENT
  Age: 68 Year
  Sex: Female

DRUGS (12)
  1. TUCATINIB [Suspect]
     Active Substance: TUCATINIB
     Indication: BREAST CANCER METASTATIC
     Dosage: 50 MG, UNK
     Dates: start: 20201116
  2. APIXABAN [Concomitant]
     Active Substance: APIXABAN
  3. ONDANSETRON [Concomitant]
     Active Substance: ONDANSETRON
  4. TUCATINIB [Suspect]
     Active Substance: TUCATINIB
     Dosage: 200 MG, BID
  5. LOMOTIL [Concomitant]
     Active Substance: ATROPINE SULFATE\DIPHENOXYLATE HYDROCHLORIDE
  6. CAPECITABINE. [Concomitant]
     Active Substance: CAPECITABINE
  7. TORSEMIDE. [Concomitant]
     Active Substance: TORSEMIDE
  8. MIRTAZAPINE. [Concomitant]
     Active Substance: MIRTAZAPINE
  9. TRASTUZUMAB. [Concomitant]
     Active Substance: TRASTUZUMAB
  10. POTASSIUM CHLORIDE. [Concomitant]
     Active Substance: POTASSIUM CHLORIDE
  11. GABAPENTIN. [Concomitant]
     Active Substance: GABAPENTIN
  12. SPIRONOLACTONE. [Concomitant]
     Active Substance: SPIRONOLACTONE

REACTIONS (11)
  - Leukocytosis [Unknown]
  - Anaemia [Unknown]
  - Flatulence [Unknown]
  - Weight decreased [Unknown]
  - Presyncope [Recovered/Resolved]
  - Dehydration [Recovered/Resolved]
  - Peripheral swelling [Unknown]
  - Fatigue [Unknown]
  - Feeling abnormal [Unknown]
  - Unevaluable event [Unknown]
  - Hypokalaemia [Unknown]

NARRATIVE: CASE EVENT DATE: 20210208
